FAERS Safety Report 8567836 (Version 2)
Quarter: 2012Q4

REPORT INFORMATION
  Report Type: 
  Country: AR (occurrence: AR)
  Receive Date: 20120518
  Receipt Date: 20121011
  Transmission Date: 20130627
  Serious: Yes (Hospitalization)
  Sender: FDA-Public Use
  Company Number: AR-BIOGENIDEC-2012BI016600

PATIENT
  Age: 61 Year
  Sex: Female

DRUGS (4)
  1. AVONEX [Suspect]
     Indication: MULTIPLE SCLEROSIS
     Route: 030
     Dates: start: 200908
  2. ENALAPRIL [Concomitant]
  3. ANIODARONE [Concomitant]
  4. SPIRONOLACTON [Concomitant]

REACTIONS (1)
  - Uterine leiomyoma [Recovered/Resolved]
